FAERS Safety Report 9319309 (Version 1)
Quarter: 2013Q2

REPORT INFORMATION
  Report Type: Spontaneous
  Country: BE (occurrence: BE)
  Receive Date: 20130530
  Receipt Date: 20130530
  Transmission Date: 20140414
  Serious: Yes (Hospitalization)
  Sender: FDA-Public Use
  Company Number: BE-PFIZER INC-2013163040

PATIENT
  Age: 62 Year
  Sex: Female

DRUGS (1)
  1. PANTOMED [Suspect]
     Indication: DYSPEPSIA
     Dosage: 20 MG, DAILY
     Route: 048
     Dates: start: 20120109, end: 20120112

REACTIONS (1)
  - Autoimmune disorder [Unknown]
